FAERS Safety Report 23526282 (Version 1)
Quarter: 2024Q1

REPORT INFORMATION
  Report Type: Spontaneous
  Country: US (occurrence: None)
  Receive Date: 20240214
  Receipt Date: 20240214
  Transmission Date: 20240410
  Serious: Yes (Death, Hospitalization)
  Sender: FDA-Public Use
  Company Number: None

PATIENT
  Age: 68 Year
  Sex: Male

DRUGS (3)
  1. AMBRISENTAN [Suspect]
     Active Substance: AMBRISENTAN
     Indication: Pulmonary arterial hypertension
     Dosage: FREQUENCY : DAILY;?
     Route: 048
     Dates: start: 20161117, end: 20231116
  2. CABOZANTINIB [Suspect]
     Active Substance: CABOZANTINIB
  3. SILDENAFIL [Suspect]
     Active Substance: SILDENAFIL

REACTIONS (8)
  - Lethargy [None]
  - Somnolence [None]
  - Stomatitis [None]
  - Abscess limb [None]
  - Gait inability [None]
  - Upper gastrointestinal haemorrhage [None]
  - Hypotension [None]
  - Haematemesis [None]

NARRATIVE: CASE EVENT DATE: 20231117
